FAERS Safety Report 18712718 (Version 1)
Quarter: 2021Q1

REPORT INFORMATION
  Report Type: Spontaneous
  Country: US (occurrence: US)
  Receive Date: 20210107
  Receipt Date: 20210107
  Transmission Date: 20210419
  Serious: Yes (Other)
  Sender: FDA-Public Use
  Company Number: NVSC2021US001956

PATIENT
  Age: 52 Year
  Sex: Male

DRUGS (1)
  1. SUMATRIPTAN. [Suspect]
     Active Substance: SUMATRIPTAN
     Indication: MIGRAINE
     Dosage: 8?10 TIMES PER MONTH
     Route: 065

REACTIONS (3)
  - Vascular injury [Unknown]
  - Concomitant disease progression [Recovering/Resolving]
  - Chronic kidney disease [Recovering/Resolving]
